FAERS Safety Report 4584631-4 (Version None)
Quarter: 2005Q1

REPORT INFORMATION
  Report Type: 
  Country: None (occurrence: None)
  Receive Date: 20050125
  Receipt Date: 20041129
  Transmission Date: 20050727
  Serious: No
  Sender: FDA-Public Use
  Company Number: USA040978428

PATIENT
  Age: 75 Year
  Sex: Female
  Weight: 66 kg

DRUGS (2)
  1. FORTEO [Suspect]
     Indication: OSTEOPOROSIS
     Dosage: 20 UG
  2. VIACTIV [Concomitant]

REACTIONS (6)
  - ARTHROPATHY [None]
  - BLOOD PHOSPHORUS INCREASED [None]
  - DIZZINESS [None]
  - JOINT STIFFNESS [None]
  - MUSCLE SPASMS [None]
  - NAUSEA [None]
